FAERS Safety Report 9281807 (Version 1)
Quarter: 2013Q2

REPORT INFORMATION
  Report Type: Spontaneous
  Country: BR (occurrence: BR)
  Receive Date: 20130510
  Receipt Date: 20130510
  Transmission Date: 20140414
  Serious: Yes (Death, Other)
  Sender: FDA-Public Use
  Company Number: BR-AMGEN-BRACT2011042835

PATIENT
  Age: 54 Year
  Sex: Male
  Weight: 90 kg

DRUGS (11)
  1. ENBREL [Suspect]
     Indication: RHEUMATOID ARTHRITIS
     Dosage: 75 MG, QWK
     Route: 058
     Dates: start: 20090615
  2. CORTISONE [Concomitant]
     Dosage: 19 MG, 1X/DAY
     Dates: start: 2007
  3. COVERSYL                           /00790702/ [Concomitant]
     Dosage: 8 MG, 1X/DAY
     Dates: start: 2009
  4. SPIRONOLACTONE [Concomitant]
     Dosage: 25 MG, 1X/DAY
     Dates: start: 2009
  5. MELOXICAM [Concomitant]
     Indication: PAIN
     Dosage: 15 MG, 1X/DAY
     Dates: start: 2009
  6. RANITIDINE [Concomitant]
     Indication: PAIN
     Dosage: 200 MG, 1X/DAY
     Dates: start: 2009
  7. FOLIC ACID [Concomitant]
     Dosage: 5 MG, 1X/DAY
  8. XANTINON COMPLEX [Concomitant]
     Dosage: 100 MG, 1X/DAY
     Dates: start: 201002
  9. METHOTREXATE [Concomitant]
     Indication: RHEUMATOID ARTHRITIS
     Dosage: UNK
  10. CAPTOPRIL [Concomitant]
     Indication: HYPERTENSION
     Dosage: UNK
  11. DEFLAZACORT [Concomitant]
     Indication: PAIN
     Dosage: UNK

REACTIONS (5)
  - Diverticulitis [Fatal]
  - Sepsis [Fatal]
  - Incorrect dose administered [Not Recovered/Not Resolved]
  - Arthralgia [Not Recovered/Not Resolved]
  - Joint swelling [Not Recovered/Not Resolved]
